FAERS Safety Report 5723966-6 (Version None)
Quarter: 2008Q2

REPORT INFORMATION
  Report Type: 
  Country: None (occurrence: None)
  Receive Date: 20080430
  Receipt Date: 20080428
  Transmission Date: 20081010
  Serious: Yes (Other)
  Sender: FDA-Public Use
  Company Number: US-KINGPHARMUSA00001-K200800451

PATIENT

DRUGS (7)
  1. ALTACE [Suspect]
     Indication: ESSENTIAL HYPERTENSION
     Dosage: 2.5 MG, QD
     Route: 048
     Dates: start: 20071127
  2. PLAVIX [Suspect]
     Indication: ACUTE CORONARY SYNDROME
     Dosage: 75 MG, QD
     Route: 048
     Dates: start: 20071127
  3. PLAVIX [Suspect]
     Indication: STENT PLACEMENT
  4. ROSUVASTATIN [Suspect]
     Indication: HYPERLIPIDAEMIA
     Dosage: 10 MG, QD
     Route: 048
     Dates: start: 20071127
  5. METOPROLOL TARTRATE [Suspect]
     Dosage: 75 MG, QD
     Route: 048
     Dates: start: 20071127
  6. ACETYLSALICYLIC ACID SRT [Suspect]
     Dosage: 160 MG, QD
     Route: 048
     Dates: start: 20071127
  7. ANTRA                              /00661201/ [Concomitant]
     Dosage: UNK, UNK
     Route: 048

REACTIONS (2)
  - DYSPNOEA EXERTIONAL [None]
  - PULMONARY FIBROSIS [None]
